FAERS Safety Report 4775833-2 (Version None)
Quarter: 2005Q3

REPORT INFORMATION
  Report Type: 
  Country: None (occurrence: None)
  Receive Date: 20050922
  Receipt Date: 20050609
  Transmission Date: 20060218
  Serious: Yes (Hospitalization, Disabling, Other)
  Sender: FDA-Public Use
  Company Number: US-MERCK-0506USA01865

PATIENT
  Age: 74 Year
  Sex: Male
  Weight: 82 kg

DRUGS (3)
  1. VIOXX [Suspect]
     Indication: OSTEOARTHRITIS
     Route: 048
     Dates: start: 20000101, end: 20040901
  2. EXTRA STRENGTH TYLENOL [Concomitant]
     Route: 065
  3. LESCOL XL [Concomitant]
     Route: 065

REACTIONS (8)
  - ABDOMINAL PAIN [None]
  - CARDIAC DISORDER [None]
  - CYST [None]
  - DIVERTICULUM [None]
  - DUODENAL ULCER [None]
  - GASTRITIS [None]
  - ISCHAEMIC CARDIOMYOPATHY [None]
  - MYOCARDIAL INFARCTION [None]
